FAERS Safety Report 19016969 (Version 4)
Quarter: 2022Q4

REPORT INFORMATION
  Report Type: Spontaneous
  Country: NL (occurrence: NL)
  Receive Date: 20210317
  Receipt Date: 20221031
  Transmission Date: 20230112
  Serious: Yes (Life-Threatening, Hospitalization, Disabling, Other)
  Sender: FDA-Public Use
  Company Number: NL-CELLTRION INC.-2021NL003188

PATIENT

DRUGS (13)
  1. INFLIXIMAB [Suspect]
     Active Substance: INFLIXIMAB
     Indication: Microscopic polyangiitis
     Dosage: 5 MG/KG, WEEK 0 (INDUCTION DOSE)
     Route: 042
  2. INFLIXIMAB [Suspect]
     Active Substance: INFLIXIMAB
     Indication: Colitis ulcerative
     Dosage: 5 MG/KG, WEEK 2 (INDUCTION DOSE)
     Route: 042
  3. INFLIXIMAB [Suspect]
     Active Substance: INFLIXIMAB
     Dosage: 5 MG/KG, WEEK 6 (INDUCTION DOSE)
     Route: 042
  4. INFLIXIMAB [Suspect]
     Active Substance: INFLIXIMAB
     Dosage: MAINTENANCE THERAPY AT 5 MG/KG, EVERY 8 WEEKS
     Route: 042
  5. INFLIXIMAB [Suspect]
     Active Substance: INFLIXIMAB
     Dosage: ESCALATED TO 10 MG/KG EVERY 8 WEEKS
     Route: 042
  6. INFLIXIMAB [Suspect]
     Active Substance: INFLIXIMAB
     Dosage: 5 MG/KG, WEEK 0-2-6, MAINTENANCE EVERY 8 WEEKS
     Route: 042
  7. INFLIXIMAB [Suspect]
     Active Substance: INFLIXIMAB
     Dosage: 5 MG/KG, OVER 6 WEEKS (WEEK 0-2-6),(AFTER 2ND ADMINISTRATION)
     Route: 042
  8. AZATHIOPRINE [Concomitant]
     Active Substance: AZATHIOPRINE
     Indication: Colitis ulcerative
     Dosage: UNKNOWN
     Route: 065
  9. AZATHIOPRINE [Concomitant]
     Active Substance: AZATHIOPRINE
     Dosage: MAINTENANCE THERAPY
  10. MESALAMINE [Concomitant]
     Active Substance: MESALAMINE
     Indication: Colitis ulcerative
     Dosage: UNKNOWN
     Route: 065
  11. MESALAMINE [Concomitant]
     Active Substance: MESALAMINE
     Dosage: MAINTENANCE THERAPY
  12. METHOTREXATE [Concomitant]
     Active Substance: METHOTREXATE
     Indication: Vascular disorder prophylaxis
     Dosage: 20 MG, WEEKLY
     Route: 048
  13. METHOTREXATE [Concomitant]
     Active Substance: METHOTREXATE
     Indication: Vasculitis

REACTIONS (10)
  - Microscopic polyangiitis [Recovered/Resolved with Sequelae]
  - Neuropathy peripheral [Not Recovered/Not Resolved]
  - Peroneal nerve palsy [Recovering/Resolving]
  - Off label use [Unknown]
  - Anti-neutrophil cytoplasmic antibody positive vasculitis [Recovering/Resolving]
  - Concomitant disease aggravated [Recovering/Resolving]
  - Vasculitis [Recovered/Resolved with Sequelae]
  - C-reactive protein increased [Recovered/Resolved]
  - Drug level below therapeutic [Recovered/Resolved]
  - Overdose [Unknown]
